FAERS Safety Report 20286435 (Version 2)
Quarter: 2022Q1

REPORT INFORMATION
  Report Type: Report from Study
  Country: CO (occurrence: US)
  Receive Date: 20220103
  Receipt Date: 20220128
  Transmission Date: 20220424
  Serious: Yes (Hospitalization, Other)
  Sender: FDA-Public Use
  Company Number: CO-ABBVIE-20K-036-3244801-00

PATIENT
  Sex: Male
  Weight: 62 kg

DRUGS (4)
  1. HUMIRA [Suspect]
     Active Substance: ADALIMUMAB
     Indication: Crohn^s disease
     Route: 058
     Dates: start: 20150223
  2. HUMIRA [Suspect]
     Active Substance: ADALIMUMAB
     Indication: Crohn^s disease
     Route: 058
     Dates: end: 20191229
  3. HUMIRA [Suspect]
     Active Substance: ADALIMUMAB
     Route: 058
  4. TRAMADOL [Suspect]
     Active Substance: TRAMADOL
     Indication: Adverse event
     Route: 065
     Dates: start: 2018

REACTIONS (13)
  - Gastrointestinal perforation [Recovering/Resolving]
  - Ileostomy closure [Unknown]
  - Wound abscess [Recovering/Resolving]
  - Cellulitis [Recovering/Resolving]
  - Post procedural infection [Recovered/Resolved]
  - Drug hypersensitivity [Unknown]
  - Oropharyngeal discomfort [Not Recovered/Not Resolved]
  - Influenza [Unknown]
  - Urticaria [Recovered/Resolved]
  - Laryngitis [Recovered/Resolved]
  - Tachycardia [Recovered/Resolved]
  - Hypersensitivity [Recovered/Resolved]
  - Diarrhoea [Recovered/Resolved]

NARRATIVE: CASE EVENT DATE: 20180101
